FAERS Safety Report 15030745 (Version 1)
Quarter: 2018Q2

REPORT INFORMATION
  Report Type: Spontaneous
  Country: FR (occurrence: FR)
  Receive Date: 20180619
  Receipt Date: 20180619
  Transmission Date: 20180711
  Serious: Yes (Other)
  Sender: FDA-Public Use
  Company Number: FR-JAZZ-2018-FR-009458

PATIENT

DRUGS (3)
  1. ASPARAGINASE [Suspect]
     Active Substance: ASPARAGINASE
     Indication: BLASTIC PLASMACYTOID DENDRITIC CELL NEOPLASIA
     Dosage: 6000 IU/M2, DAY 2-DAY 4-DAY 6-DAY 8
  2. DEXAMETHASONE. [Suspect]
     Active Substance: DEXAMETHASONE
     Indication: BLASTIC PLASMACYTOID DENDRITIC CELL NEOPLASIA
     Dosage: 40 MG/D DAY 1 TO DAY 4
     Route: 065
  3. METHOTREXATE. [Suspect]
     Active Substance: METHOTREXATE
     Indication: BLASTIC PLASMACYTOID DENDRITIC CELL NEOPLASIA
     Dosage: 3000 MG/M2, ON DAY 01
     Route: 065

REACTIONS (1)
  - Nephropathy toxic [Unknown]
